FAERS Safety Report 8300867-0 (Version None)
Quarter: 2012Q2

REPORT INFORMATION
  Report Type: 
  Country: None (occurrence: None)
  Receive Date: 20120420
  Receipt Date: 20120417
  Transmission Date: 20120825
  Serious: Yes (Life-Threatening)
  Sender: FDA-Public Use
  Company Number: JP-SANOFI-AVENTIS-2011SA031958

PATIENT
  Age: 93 Year
  Sex: Female
  Weight: 38.5 kg

DRUGS (7)
  1. ATENOLOL AND CHLORTHALIDONE [Suspect]
     Route: 065
     Dates: start: 20100330, end: 20100330
  2. AMITRIPTYLINE HCL [Concomitant]
     Route: 048
     Dates: start: 20100402
  3. LAXATIVES [Concomitant]
     Route: 048
     Dates: start: 20100402
  4. ATENOLOL AND CHLORTHALIDONE [Suspect]
     Route: 065
     Dates: start: 20100331
  5. FAMOTIDINE [Concomitant]
     Route: 048
     Dates: start: 20100330
  6. ASPIRIN [Concomitant]
     Route: 048
     Dates: start: 20100330
  7. HEPARIN [Concomitant]
     Dosage: DOSE:5000 UNIT(S)
     Route: 042
     Dates: start: 20100330, end: 20100402

REACTIONS (2)
  - CARDIOGENIC SHOCK [None]
  - VENTRICULAR TACHYCARDIA [None]
